FAERS Safety Report 6631696-1 (Version None)
Quarter: 2010Q1

REPORT INFORMATION
  Report Type: 
  Country: None (occurrence: None)
  Receive Date: 20100312
  Receipt Date: 20100217
  Transmission Date: 20100710
  Serious: Yes (Hospitalization)
  Sender: FDA-Public Use
  Company Number: PHEH2009US16144

PATIENT
  Sex: Female

DRUGS (2)
  1. EXJADE [Suspect]
     Indication: SICKLE CELL ANAEMIA
     Dosage: 1500 MG PER DAY
     Route: 048
  2. ANTICOAGULANTS [Concomitant]

REACTIONS (2)
  - BACTERAEMIA [None]
  - DIARRHOEA [None]
